FAERS Safety Report 4816591-2 (Version None)
Quarter: 2005Q4

REPORT INFORMATION
  Report Type: 
  Country: None (occurrence: None)
  Receive Date: 20051028
  Receipt Date: 20051020
  Transmission Date: 20060501
  Serious: Yes (Hospitalization)
  Sender: FDA-Public Use
  Company Number: COV2-2005-00032

PATIENT
  Age: 65 Year
  Sex: Female
  Weight: 95 kg

DRUGS (4)
  1. FOSRENOL [Suspect]
     Indication: HYPERPHOSPHATAEMIA
     Dosage: 1000 MG, 3X/DAY:  TID, ORAL
     Route: 048
     Dates: start: 20050413, end: 20050515
  2. IMDUR [Concomitant]
  3. NORVASC                                                /DEN/ (AMLODIPI [Concomitant]
  4. DIOVAN HCT [Concomitant]

REACTIONS (8)
  - ABDOMINAL DISTENSION [None]
  - BLOOD GLUCOSE INCREASED [None]
  - BLOOD POTASSIUM INCREASED [None]
  - BLOOD PRESSURE DIASTOLIC DECREASED [None]
  - GASTRIC POLYPS [None]
  - GASTROOESOPHAGITIS [None]
  - HAEMATOCRIT DECREASED [None]
  - HAEMOGLOBIN DECREASED [None]
